FAERS Safety Report 9739512 (Version 1)
Quarter: 2013Q4

REPORT INFORMATION
  Report Type: Spontaneous
  Country: JP (occurrence: JP)
  Receive Date: 20131209
  Receipt Date: 20131209
  Transmission Date: 20140711
  Serious: Yes (Other)
  Sender: FDA-Public Use
  Company Number: JP-009507513-1312JPN003613

PATIENT
  Age: 65 Year
  Sex: Male

DRUGS (2)
  1. INTRONA [Suspect]
     Dosage: UNK
     Route: 030
  2. PEGINTRON [Suspect]
     Dosage: UNK
     Route: 058

REACTIONS (1)
  - Retinal vein occlusion [Unknown]
